FAERS Safety Report 17070722 (Version 11)
Quarter: 2020Q3

REPORT INFORMATION
  Report Type: Spontaneous
  Country: US (occurrence: US)
  Receive Date: 20191125
  Receipt Date: 20200817
  Transmission Date: 20201102
  Serious: Yes (Other)
  Sender: FDA-Public Use
  Company Number: US-PFIZER INC-2019505666

PATIENT
  Age: 76 Year
  Sex: Male
  Weight: 53.52 kg

DRUGS (9)
  1. GENOTROPIN MQ [Suspect]
     Active Substance: SOMATROPIN
     Indication: HYPOPITUITARISM
     Dosage: 0.2 MG, DAILY
     Route: 058
     Dates: start: 20191023
  2. GENOTROPIN MQ [Suspect]
     Active Substance: SOMATROPIN
     Dosage: 0.2
  3. GENOTROPIN MQ [Suspect]
     Active Substance: SOMATROPIN
     Dosage: 0.2 MG, 2X/DAY
     Dates: start: 20191123
  4. GENOTROPIN MQ [Suspect]
     Active Substance: SOMATROPIN
     Dosage: 1.2
  5. TESTOSTERONE CIPIONATE [Suspect]
     Active Substance: TESTOSTERONE
     Indication: HYPOPITUITARISM
     Dosage: 2 DF, DAILY (2 PUMPS DAILY)
  6. GENOTROPIN MQ [Suspect]
     Active Substance: SOMATROPIN
     Indication: OSTEOPOROSIS
     Dosage: 0.4 MG, DAILY
     Dates: start: 20191123
  7. AMLODIPINE BESYLATE. [Concomitant]
     Active Substance: AMLODIPINE BESYLATE
     Dosage: UNK
  8. LEVOTHYROXINE SODIUM. [Suspect]
     Active Substance: LEVOTHYROXINE SODIUM
     Indication: HYPOPITUITARISM
     Dosage: 88 UG, UNK
  9. CORTISONE ACETATE. [Suspect]
     Active Substance: CORTISONE ACETATE
     Indication: HYPOPITUITARISM
     Dosage: 20 MG, DAILY (15 MG AM, 5 MG PM)

REACTIONS (5)
  - Intentional product misuse [Unknown]
  - Body height decreased [Unknown]
  - Heart rate increased [Unknown]
  - Weight decreased [Unknown]
  - Cataract [Recovered/Resolved]
